FAERS Safety Report 13127990 (Version 1)
Quarter: 2017Q1

REPORT INFORMATION
  Report Type: Spontaneous
  Country: AU (occurrence: AU)
  Receive Date: 20170118
  Receipt Date: 20170118
  Transmission Date: 20170428
  Serious: Yes (Hospitalization, Other)
  Sender: FDA-Public Use
  Company Number: AU-MYLANLABS-2017M1003217

PATIENT

DRUGS (1)
  1. ASMOL [Suspect]
     Active Substance: ALBUTEROL SULFATE
     Indication: ASTHMA
     Dosage: 100 ?G, UNK
     Route: 055

REACTIONS (2)
  - Expired product administered [Unknown]
  - Asthma [Unknown]

NARRATIVE: CASE EVENT DATE: 20170107
